FAERS Safety Report 5154286-9 (Version None)
Quarter: 2006Q4

REPORT INFORMATION
  Report Type: 
  Country: None (occurrence: None)
  Receive Date: 20061114
  Receipt Date: 20061102
  Transmission Date: 20070319
  Serious: Yes (Hospitalization, Disabling, Other)
  Sender: FDA-Public Use
  Company Number: GXKR2006GB07029

PATIENT
  Age: 78 Year
  Sex: Male

DRUGS (11)
  1. CIPROFLOXACIN [Suspect]
     Indication: INFECTIVE EXACERBATION OF CHRONIC OBSTRUCTIVE AIRWAYS DISEASE
     Dosage: 500 MG, BID, ORAL
     Route: 048
     Dates: start: 20061002, end: 20061002
  2. ASPIRIN [Concomitant]
  3. CALCIUM CARBONATE (CALCIUM CARBONATE) [Concomitant]
  4. CARBOCISTEINE (CARBOCISTEINE) [Concomitant]
  5. CITALOPRAM HYDROBROMIDE [Concomitant]
  6. FUROSEMIDE [Concomitant]
  7. MONOMAX (ISOSORBIDE MONONITRATE) [Concomitant]
  8. OMEPRAZOLE [Concomitant]
  9. SERETIDE (FLUTICASONE PROPIONATE, SALMETEROL XINAFOATE) [Concomitant]
  10. TIOTROPIUM BROMIDE (TIOTROPIUM BROMIDE) [Concomitant]
  11. UNIPHYLLIN (THEOPHYLLIN) [Concomitant]

REACTIONS (3)
  - ASTHENIA [None]
  - CONDITION AGGRAVATED [None]
  - MYALGIA [None]
